FAERS Safety Report 23912822 (Version 6)
Quarter: 2024Q3

REPORT INFORMATION
  Report Type: Report from Study
  Country: CO (occurrence: CO)
  Receive Date: 20240529
  Receipt Date: 20240910
  Transmission Date: 20241016
  Serious: Yes (Other)
  Sender: AMGEN
  Company Number: CO-AMGEN-COLSL2024037357

PATIENT
  Age: 61 Year
  Sex: Female

DRUGS (1)
  1. VECTIBIX [Suspect]
     Active Substance: PANITUMUMAB
     Indication: Colorectal cancer metastatic
     Dosage: UNK, Q3WK (EVERY 21 DAYS)
     Route: 042
     Dates: start: 20240216, end: 20240902

REACTIONS (9)
  - Skin burning sensation [Not Recovered/Not Resolved]
  - Oedema [Not Recovered/Not Resolved]
  - Skin lesion [Not Recovered/Not Resolved]
  - Rash [Not Recovered/Not Resolved]
  - Erythema [Not Recovered/Not Resolved]
  - Pruritus [Not Recovered/Not Resolved]
  - Thrombocytopenia [Not Recovered/Not Resolved]
  - Colorectal cancer metastatic [Not Recovered/Not Resolved]
  - Off label use [Unknown]

NARRATIVE: CASE EVENT DATE: 20240101
